FAERS Safety Report 11433263 (Version 1)
Quarter: 2015Q3

REPORT INFORMATION
  Report Type: Spontaneous
  Country: US (occurrence: None)
  Receive Date: 20150827
  Receipt Date: 20150827
  Transmission Date: 20151125
  Serious: Yes (Hospitalization)
  Sender: FDA-Public Use
  Company Number: US-2015INT000503

PATIENT
  Age: 41 Year
  Sex: Male
  Weight: 119 kg

DRUGS (3)
  1. RADIOTHERAPY [Suspect]
     Active Substance: RADIATION THERAPY
     Indication: OESOPHAGEAL CARCINOMA
     Dosage: 5040 CGY
  2. CISPLATIN (CISPLATIN) [Suspect]
     Active Substance: CISPLATIN
     Indication: OESOPHAGEAL CARCINOMA
     Dosage: INITIAL FULL-DOSE
  3. FLUOROURACIL (FLUOROURACIL) [Suspect]
     Active Substance: FLUOROURACIL
     Indication: OESOPHAGEAL CARCINOMA
     Dosage: INITIAL FULL-DOSE, 17% DOSE REDUCTION

REACTIONS (5)
  - Device related infection [None]
  - Nausea [None]
  - Vomiting [None]
  - Thrombosis [None]
  - Mucosal inflammation [None]
